FAERS Safety Report 13966459 (Version 2)
Quarter: 2017Q4

REPORT INFORMATION
  Report Type: Spontaneous
  Country: JP (occurrence: JP)
  Receive Date: 20170913
  Receipt Date: 20171107
  Transmission Date: 20180320
  Serious: Yes (Life-Threatening)
  Sender: FDA-Public Use
  Company Number: JP-ROCHE-1992798

PATIENT
  Age: 69 Year
  Sex: Female
  Weight: 37 kg

DRUGS (1)
  1. ROCEPHIN [Suspect]
     Active Substance: CEFTRIAXONE SODIUM
     Indication: CYSTITIS
     Route: 041
     Dates: start: 20170906, end: 20170906

REACTIONS (1)
  - Status asthmaticus [Recovered/Resolved]

NARRATIVE: CASE EVENT DATE: 20170906
